FAERS Safety Report 9704105 (Version 1)
Quarter: 2013Q4

REPORT INFORMATION
  Report Type: Spontaneous
  Country: US (occurrence: US)
  Receive Date: 20131122
  Receipt Date: 20131122
  Transmission Date: 20140711
  Serious: No
  Sender: FDA-Public Use
  Company Number: US-GLAXOSMITHKLINE-A1000569A

PATIENT
  Age: 50 Year
  Sex: Female

DRUGS (2)
  1. WELLBUTRIN SR [Suspect]
     Indication: DEPRESSION
     Dosage: 150MG PER DAY
     Route: 048
  2. DELESTROGEN [Concomitant]

REACTIONS (6)
  - Hypersensitivity [Unknown]
  - Haemorrhoids [Unknown]
  - Urticaria [Unknown]
  - Urticaria [Unknown]
  - Insomnia [Unknown]
  - Energy increased [Unknown]
